FAERS Safety Report 23154948 (Version 1)
Quarter: 2023Q4

REPORT INFORMATION
  Report Type: Spontaneous
  Country: BR (occurrence: BR)
  Receive Date: 20231107
  Receipt Date: 20231107
  Transmission Date: 20240109
  Serious: Yes (Hospitalization, Other)
  Sender: FDA-Public Use
  Company Number: BR-TAKEDA-2023TUS031405

PATIENT
  Sex: Female
  Weight: 63 kg

DRUGS (2)
  1. LISDEXAMFETAMINE DIMESYLATE [Suspect]
     Active Substance: LISDEXAMFETAMINE DIMESYLATE
     Indication: Attention deficit hyperactivity disorder
     Dosage: 1 DOSAGE FORM, QD
     Route: 048
  2. LISDEXAMFETAMINE DIMESYLATE [Suspect]
     Active Substance: LISDEXAMFETAMINE DIMESYLATE
     Indication: Autism spectrum disorder
     Dosage: UNK
     Route: 048

REACTIONS (6)
  - Infection [Unknown]
  - Drug dependence [Unknown]
  - Disturbance in attention [Unknown]
  - Therapeutic product effect variable [Unknown]
  - Adulterated product [Unknown]
  - Product physical issue [Unknown]
